FAERS Safety Report 7436293-6 (Version None)
Quarter: 2011Q2

REPORT INFORMATION
  Report Type: 
  Country: None (occurrence: None)
  Receive Date: 20110426
  Receipt Date: 20110411
  Transmission Date: 20111010
  Serious: Yes (Hospitalization)
  Sender: FDA-Public Use
  Company Number: FR-AMGEN-FRASP2011018650

PATIENT
  Age: 68 Year
  Sex: Male

DRUGS (9)
  1. ENBREL [Suspect]
     Indication: RHEUMATOID ARTHRITIS
     Dosage: 50 MG, WEEKLY
     Route: 058
     Dates: start: 20100101, end: 20110112
  2. ISOPTIN                            /00014302/ [Concomitant]
     Dosage: 240 UNK, UNK
     Dates: start: 20100101
  3. APROVEL [Concomitant]
     Dosage: 300 UNK, UNK
     Dates: start: 20100101
  4. TANAKAN                            /01003103/ [Concomitant]
     Dosage: UNK
     Dates: start: 20100101
  5. CORTANCYL [Suspect]
     Dosage: 20 OR 30 MG DEPENDING ON DAYS
     Route: 048
     Dates: start: 20110124
  6. EUCREAS [Concomitant]
     Dosage: UNK
     Dates: start: 20100101
  7. CORTANCYL [Suspect]
     Indication: RHEUMATOID ARTHRITIS
     Dosage: 15 MG, 1X/DAY
     Route: 048
     Dates: start: 20060101, end: 20110114
  8. FEXOFENADINE HCL [Concomitant]
     Dosage: UNKNOWN
     Dates: start: 20100101
  9. NASACORT [Concomitant]
     Dosage: UNK
     Dates: start: 20100101

REACTIONS (6)
  - PSOAS ABSCESS [None]
  - DEEP VEIN THROMBOSIS [None]
  - PRURITUS [None]
  - STAPHYLOCOCCAL INFECTION [None]
  - RENAL FAILURE [None]
  - RASH [None]
